FAERS Safety Report 11419392 (Version 1)
Quarter: 2015Q3

REPORT INFORMATION
  Report Type: Spontaneous
  Country: US (occurrence: US)
  Receive Date: 20150826
  Receipt Date: 20150826
  Transmission Date: 20151125
  Serious: Yes (Other)
  Sender: FDA-Public Use
  Company Number: US-AUROBINDO-AUR-APL-2015-07485

PATIENT
  Age: 27 Year
  Sex: Male

DRUGS (12)
  1. FLUPHENAZINE [Concomitant]
     Active Substance: FLUPHENAZINE
     Indication: PSYCHOTIC DISORDER
     Dosage: 5 MG, TWO TIMES A DAY
     Route: 065
  2. LURASIDONE [Concomitant]
     Active Substance: LURASIDONE
     Dosage: 80 MG, UNK
     Route: 065
  3. OLANZAPINE 15MG [Suspect]
     Active Substance: OLANZAPINE
     Indication: PSYCHOTIC DISORDER
     Dosage: 15 MG, DAILY
     Route: 065
  4. OLANZAPINE 15MG [Suspect]
     Active Substance: OLANZAPINE
     Dosage: 40 MG, DAILY
     Route: 065
  5. VALPROATE [Concomitant]
     Active Substance: VALPROATE SODIUM
     Indication: MOOD ALTERED
     Dosage: 1500 UNK, AT BED TIME
     Route: 065
  6. FLUPHENAZINE [Concomitant]
     Active Substance: FLUPHENAZINE
     Dosage: 10 MG, TWO TIMES A DAY
     Route: 065
  7. LURASIDONE [Concomitant]
     Active Substance: LURASIDONE
     Indication: PSYCHOTIC DISORDER
     Dosage: 40 MG, UNK
     Route: 065
  8. OLANZAPINE 15MG [Suspect]
     Active Substance: OLANZAPINE
     Dosage: 15-20 MG DAILY
     Route: 065
  9. FLUOXETINE 10 MG [Suspect]
     Active Substance: FLUOXETINE HYDROCHLORIDE
     Indication: PSYCHOTIC DISORDER
     Dosage: 10 MG, DAILY
     Route: 065
  10. FLUOXETINE 10 MG [Suspect]
     Active Substance: FLUOXETINE HYDROCHLORIDE
     Dosage: 20 MG, DAILY
     Route: 065
  11. OLANZAPINE 15MG [Suspect]
     Active Substance: OLANZAPINE
     Dosage: 30 MG, AT BED TIME
     Route: 065
  12. ZIPRASIDONE. [Concomitant]
     Active Substance: ZIPRASIDONE
     Indication: PSYCHOTIC DISORDER
     Dosage: 40 MG, DAILY
     Route: 065

REACTIONS (5)
  - Neutropenia [Recovered/Resolved]
  - Insomnia [Recovered/Resolved]
  - Grandiosity [Recovered/Resolved]
  - Weight increased [Recovered/Resolved]
  - Euphoric mood [Recovered/Resolved]
